FAERS Safety Report 20862261 (Version 1)
Quarter: 2022Q2

REPORT INFORMATION
  Report Type: Spontaneous
  Country: US (occurrence: US)
  Receive Date: 20220523
  Receipt Date: 20220523
  Transmission Date: 20220721
  Serious: No
  Sender: FDA-Public Use
  Company Number: US-BAYER-2022A072145

PATIENT
  Age: 70 Year
  Sex: Female

DRUGS (1)
  1. KERENDIA [Suspect]
     Active Substance: FINERENONE

REACTIONS (4)
  - Disorientation [None]
  - Nausea [None]
  - Dizziness [None]
  - Sinusitis [None]

NARRATIVE: CASE EVENT DATE: 20220516
